FAERS Safety Report 13636584 (Version 1)
Quarter: 2017Q2

REPORT INFORMATION
  Report Type: Spontaneous
  Country: US (occurrence: US)
  Receive Date: 20170531
  Receipt Date: 20170531
  Transmission Date: 20170830
  Serious: No
  Sender: FDA-Public Use
  Company Number: US-ASTELLAS-1834514

PATIENT
  Sex: Female

DRUGS (6)
  1. PROCARDIA (UNITED STATES) [Concomitant]
  2. MELOXICAM. [Concomitant]
     Active Substance: MELOXICAM
  3. ZANTAC [Concomitant]
     Active Substance: RANITIDINE HYDROCHLORIDE
  4. SYNTHROID [Concomitant]
     Active Substance: LEVOTHYROXINE SODIUM
  5. TARCEVA [Suspect]
     Active Substance: ERLOTINIB HYDROCHLORIDE
     Indication: PRODUCT USED FOR UNKNOWN INDICATION
     Dosage: ONGOING
     Route: 048
     Dates: start: 20130626
  6. LASIX [Concomitant]
     Active Substance: FUROSEMIDE

REACTIONS (1)
  - Arthralgia [Unknown]
